FAERS Safety Report 8984186 (Version 1)
Quarter: 2012Q4

REPORT INFORMATION
  Report Type: Spontaneous
  Country: US (occurrence: None)
  Receive Date: 20121213
  Receipt Date: 20121213
  Transmission Date: 20130627
  Serious: Yes (Other)
  Sender: FDA-Public Use
  Company Number: AUR-APL-2012-05278

PATIENT
  Age: 60 Year
  Sex: Female
  Weight: 56.7 kg

DRUGS (2)
  1. CELEBREX [Suspect]
     Indication: ARTHRITIS
  2. NORCO (VICODIN) [Concomitant]

REACTIONS (7)
  - Drug ineffective [None]
  - Clavicle fracture [None]
  - Fall [None]
  - Back pain [None]
  - Activities of daily living impaired [None]
  - Pain [None]
  - Arthritis [None]
